FAERS Safety Report 8738210 (Version 2)
Quarter: 2012Q4

REPORT INFORMATION
  Report Type: 
  Country: US (occurrence: US)
  Receive Date: 20120823
  Receipt Date: 20121019
  Transmission Date: 20130627
  Serious: No
  Sender: FDA-Public Use
  Company Number: US-PFIZER INC-2012203853

PATIENT
  Age: 82 Year
  Sex: Female
  Weight: 58.05 kg

DRUGS (10)
  1. PRISTIQ [Suspect]
     Indication: DEPRESSION
     Dosage: 25 mg, 1x/day
     Route: 048
     Dates: start: 20120817, end: 20120819
  2. PRISTIQ [Suspect]
     Dosage: 25 mg, alternate day
     Route: 048
     Dates: start: 20120819, end: 2012
  3. ZOCOR [Concomitant]
     Indication: CARDIAC DISORDER
     Dosage: UNK
  4. COREG [Concomitant]
     Indication: HYPERTENSION
     Dosage: UNK
  5. ASPIRIN [Concomitant]
     Dosage: 81 mg, UNK
  6. LASIX [Concomitant]
     Dosage: UNK
  7. AMIODARONE [Concomitant]
     Dosage: UNK
  8. PRADAXA [Concomitant]
     Dosage: UNK
  9. ARIMIDEX [Concomitant]
     Indication: BREAST CANCER
     Dosage: UNK
  10. MACRODANTIN [Concomitant]
     Indication: NEUROGENIC BLADDER
     Dosage: UNK, as needed

REACTIONS (3)
  - Dizziness [Unknown]
  - Fatigue [Unknown]
  - Drug intolerance [Unknown]
